FAERS Safety Report 8132339-0 (Version None)
Quarter: 2012Q1

REPORT INFORMATION
  Report Type: 
  Country: None (occurrence: None)
  Receive Date: 20120208
  Receipt Date: 20120123
  Transmission Date: 20120608
  Serious: Yes (Death, Hospitalization)
  Sender: FDA-Public Use
  Company Number: DSA_54879_2012

PATIENT

DRUGS (5)
  1. MORPHINE SULFATE [Concomitant]
  2. XENAZINE [Suspect]
     Indication: PRODUCT USED FOR UNKNOWN INDICATION
     Dosage: SEE IMAGE
     Route: 048
     Dates: start: 20111228, end: 20111228
  3. XENAZINE [Suspect]
     Indication: PRODUCT USED FOR UNKNOWN INDICATION
     Dosage: SEE IMAGE
     Route: 048
     Dates: start: 20090101, end: 20100101
  4. XENAZINE [Suspect]
     Indication: PRODUCT USED FOR UNKNOWN INDICATION
     Dosage: SEE IMAGE
     Route: 048
     Dates: start: 20100101
  5. PRAZEPAM [Concomitant]

REACTIONS (5)
  - TARDIVE DYSKINESIA [None]
  - INCORRECT DOSE ADMINISTERED [None]
  - URINARY TRACT DISORDER [None]
  - SKIN DISORDER [None]
  - SOMNOLENCE [None]
